FAERS Safety Report 5159470-6 (Version None)
Quarter: 2006Q4

REPORT INFORMATION
  Report Type: 
  Country: None (occurrence: None)
  Receive Date: 20061122
  Receipt Date: 20061122
  Transmission Date: 20070319
  Serious: Yes (Hospitalization)
  Sender: FDA-Public Use
  Company Number: None

PATIENT
  Sex: Male
  Weight: 82.7 kg

DRUGS (2)
  1. TAXOTERE [Suspect]
     Dosage: 146 MG
  2. NEULASTA [Suspect]

REACTIONS (3)
  - CHEST PAIN [None]
  - HEART RATE INCREASED [None]
  - PALPITATIONS [None]
